FAERS Safety Report 8987160 (Version 1)
Quarter: 2012Q4

REPORT INFORMATION
  Report Type: 
  Country: IT (occurrence: IT)
  Receive Date: 20121226
  Receipt Date: 20121226
  Transmission Date: 20130627
  Serious: Yes (Other)
  Sender: FDA-Public Use
  Company Number: IT-ROCHE-1173363

PATIENT
  Age: 74 Year
  Sex: Female

DRUGS (12)
  1. MABTHERA [Suspect]
     Indication: DIFFUSE LARGE B-CELL LYMPHOMA
     Route: 042
     Dates: start: 20120719, end: 20121016
  2. MABTHERA [Suspect]
     Indication: T-CELL LYMPHOMA
  3. LAMIVUDINA [Concomitant]
     Route: 048
     Dates: start: 20120709, end: 20121105
  4. MYOCET [Concomitant]
     Route: 042
     Dates: start: 20120719, end: 20121016
  5. VINCRISTINA [Concomitant]
     Route: 042
     Dates: start: 20120719, end: 20121016
  6. DELTACORTENE [Concomitant]
     Route: 048
     Dates: start: 20120719, end: 20121020
  7. SOLU-CORTEF [Concomitant]
     Route: 042
     Dates: start: 20120719, end: 20121016
  8. LORTAAN [Concomitant]
     Route: 048
  9. KYTRIL [Concomitant]
     Route: 042
     Dates: start: 20120719, end: 20121016
  10. RANIDIL [Concomitant]
     Route: 042
     Dates: start: 20120719, end: 20121016
  11. CYCLOPHOSPHAMIDE [Concomitant]
     Route: 042
     Dates: start: 20120719, end: 20121016
  12. OMEPRAZOLO [Concomitant]
     Route: 048
     Dates: start: 20120709, end: 20121105

REACTIONS (5)
  - Bronchospasm [Recovered/Resolved]
  - Dysphagia [Recovered/Resolved]
  - Dysphonia [Recovered/Resolved]
  - Erythema [Recovered/Resolved]
  - Acquired macroglossia [Recovered/Resolved]
